FAERS Safety Report 5818248-8 (Version None)
Quarter: 2008Q3

REPORT INFORMATION
  Report Type: 
  Country: None (occurrence: None)
  Receive Date: 20080722
  Receipt Date: 20080710
  Transmission Date: 20090109
  Serious: Yes (Other)
  Sender: FDA-Public Use
  Company Number: GB-PFIZER INC-2008046289

PATIENT
  Sex: Female
  Weight: 55 kg

DRUGS (13)
  1. NEURONTIN [Suspect]
     Indication: NECK PAIN
     Dates: start: 20080410, end: 20080602
  2. FENTANYL-100 [Concomitant]
     Indication: PAIN
     Route: 061
  3. CYCLIZINE [Concomitant]
     Indication: NAUSEA
     Dates: start: 20080501
  4. ORAMORPH SR [Concomitant]
     Indication: PAIN
     Dosage: TEXT:10-20MG
     Dates: start: 20080501
  5. FUROSEMIDE [Concomitant]
     Indication: OEDEMA
     Dosage: DAILY DOSE:40MG-FREQ:DAILY
     Dates: start: 20080501
  6. AMITRIPTYLINE HCL [Concomitant]
     Dosage: DAILY DOSE:100MG
     Dates: start: 20080501
  7. LANSOPRAZOLE [Concomitant]
     Dosage: DAILY DOSE:30MG-FREQ:DAILY
     Dates: start: 20080501
  8. ACETAMINOPHEN [Concomitant]
     Dosage: DAILY DOSE:1GRAM
     Dates: start: 20080501
  9. TEMAZEPAM [Concomitant]
     Dates: start: 20080501
  10. NIFEDIPINE [Concomitant]
     Dates: start: 20080501
  11. PREDNISOLONE [Concomitant]
     Dosage: DAILY DOSE:15MG-FREQ:DAILY
     Dates: start: 20080501
  12. INSULIN [Concomitant]
     Route: 058
     Dates: start: 20080501
  13. CELIPROLOL [Concomitant]
     Dates: start: 20080501

REACTIONS (5)
  - OEDEMA [None]
  - OEDEMA PERIPHERAL [None]
  - RENAL IMPAIRMENT [None]
  - SKIN DISORDER [None]
  - SKIN LESION [None]
